FAERS Safety Report 18203754 (Version 1)
Quarter: 2020Q3

REPORT INFORMATION
  Report Type: Spontaneous
  Country: US (occurrence: US)
  Receive Date: 20200827
  Receipt Date: 20200827
  Transmission Date: 20201103
  Serious: Yes (Other)
  Sender: FDA-Public Use
  Company Number: US-RECKITT BENCKISER HEALTHCARE INT LIMITED-RB-91767-2020

PATIENT
  Sex: Female

DRUGS (2)
  1. MUCINEX DM [Suspect]
     Active Substance: DEXTROMETHORPHAN HYDROBROMIDE\GUAIFENESIN
     Indication: RESPIRATORY TRACT CONGESTION
     Dosage: 1200 MILLIGRAM, BID, TOOK TOTAL OF 14 TABLETS OVER A WEEK
     Route: 065
     Dates: start: 202004, end: 2020
  2. MUCINEX DM [Suspect]
     Active Substance: DEXTROMETHORPHAN HYDROBROMIDE\GUAIFENESIN
     Indication: COUGH
     Dosage: 600 MILLIGRAM, BID, TOOK TOTAL OF 14 TABLETS OVER A WEEK
     Route: 065
     Dates: start: 202004

REACTIONS (7)
  - Blood pressure increased [Recovered/Resolved]
  - Hallucination [Recovered/Resolved]
  - Incorrect product administration duration [Recovering/Resolving]
  - Paranoia [Recovered/Resolved]
  - Product use in unapproved indication [Recovering/Resolving]
  - Heart rate increased [Recovered/Resolved]
  - Burning sensation [Recovering/Resolving]

NARRATIVE: CASE EVENT DATE: 2020
